FAERS Safety Report 7427701-5 (Version None)
Quarter: 2011Q2

REPORT INFORMATION
  Report Type: 
  Country: None (occurrence: None)
  Receive Date: 20110411
  Receipt Date: 20110331
  Transmission Date: 20111010
  Serious: Yes (Death, Hospitalization)
  Sender: FDA-Public Use
  Company Number: UTC-006057

PATIENT
  Age: 36 Year
  Sex: Male
  Weight: 99.09 kg

DRUGS (3)
  1. DIURETICS (DIURETICS) [Concomitant]
  2. REMODULIN [Suspect]
     Indication: PULMONARY ARTERIAL HYPERTENSION
     Dosage: 63.36 UG/KG (0.44 UG/KG,1 IN 1 MIN), INTRAVENOUS
     Route: 042
     Dates: start: 20101202
  3. REVATIO [Concomitant]

REACTIONS (1)
  - HEPATIC MASS [None]
